FAERS Safety Report 4630728-X (Version None)
Quarter: 2005Q2

REPORT INFORMATION
  Report Type: 
  Country: None (occurrence: None)
  Receive Date: 20050406
  Receipt Date: 20050324
  Transmission Date: 20051028
  Serious: Yes (Other)
  Sender: FDA-Public Use
  Company Number: USA050392840

PATIENT
  Age: 54 Year
  Sex: Male
  Weight: 56 kg

DRUGS (10)
  1. XIGRIS [Suspect]
     Indication: SEPSIS
     Dosage: 24 UG/KG/HR
     Dates: start: 20050305, end: 20050308
  2. ALBUMIN NOS [Concomitant]
  3. ALBUTEROL [Concomitant]
  4. ATROVENT [Concomitant]
  5. ANCEF [Concomitant]
  6. CLEOCIN [Concomitant]
  7. DIPRIVAN [Concomitant]
  8. LEVAQUIN [Concomitant]
  9. TPN (TOTAL PARENTERAL NUTRITION) [Concomitant]
  10. NOVOLIN R [Concomitant]

REACTIONS (4)
  - BLOOD CREATININE INCREASED [None]
  - BLOOD GLUCOSE INCREASED [None]
  - BLOOD UREA INCREASED [None]
  - GENERAL PHYSICAL HEALTH DETERIORATION [None]
